FAERS Safety Report 25151108 (Version 1)
Quarter: 2025Q2

REPORT INFORMATION
  Report Type: Spontaneous
  Country: US (occurrence: US)
  Receive Date: 20250402
  Receipt Date: 20250402
  Transmission Date: 20250717
  Serious: Yes (Other)
  Sender: SANOFI AVENTIS
  Company Number: US-SA-2025SA094445

PATIENT
  Sex: Female

DRUGS (20)
  1. DUPIXENT [Suspect]
     Active Substance: DUPILUMAB
     Indication: Neurodermatitis
     Dosage: 300 MG, QOW
     Route: 058
  2. GLYBURIDE [Concomitant]
     Active Substance: GLYBURIDE
  3. UNSPECIFIED INGREDIENT [Concomitant]
     Active Substance: UNSPECIFIED INGREDIENT
  4. BENZOCAINE (BENZOCAINE) [Concomitant]
     Active Substance: BENZOCAINE
  5. CELECOXIB [Concomitant]
     Active Substance: CELECOXIB
  6. CRANBERRY [Concomitant]
     Active Substance: CRANBERRY
  7. DIMENHYDRINATE [Concomitant]
     Active Substance: DIMENHYDRINATE
  8. DULOXETINE [Concomitant]
     Active Substance: DULOXETINE
  9. DIETARY SUPPLEMENT [Concomitant]
     Active Substance: DIETARY SUPPLEMENT
  10. EZETIMIBE [Concomitant]
     Active Substance: EZETIMIBE
  11. LANTUS SOLOSTAR [Concomitant]
     Active Substance: INSULIN GLARGINE
  12. LEVOTHYROXINE [Concomitant]
     Active Substance: LEVOTHYROXINE
  13. LINZESS [Concomitant]
     Active Substance: LINACLOTIDE
  14. LISINOPRIL [Concomitant]
     Active Substance: LISINOPRIL
  15. MICONAZOLE [Concomitant]
     Active Substance: MICONAZOLE
  16. PANTOPRAZOLE [Concomitant]
     Active Substance: PANTOPRAZOLE
  17. PREGABALIN [Concomitant]
     Active Substance: PREGABALIN
  18. SCALPICIN [Concomitant]
     Active Substance: HYDROCORTISONE
  19. Triple antibiotic [Concomitant]
  20. TRULICITY [Concomitant]
     Active Substance: DULAGLUTIDE

REACTIONS (8)
  - Diabetes mellitus [Not Recovered/Not Resolved]
  - Thyroid disorder [Not Recovered/Not Resolved]
  - Blood pressure abnormal [Not Recovered/Not Resolved]
  - Constipation [Not Recovered/Not Resolved]
  - Pain [Not Recovered/Not Resolved]
  - Blood cholesterol abnormal [Not Recovered/Not Resolved]
  - Accidental exposure to product [Unknown]
  - Exposure via skin contact [Unknown]
